FAERS Safety Report 17593491 (Version 1)
Quarter: 2020Q1

REPORT INFORMATION
  Report Type: Spontaneous
  Country: US (occurrence: US)
  Receive Date: 20200327
  Receipt Date: 20200327
  Transmission Date: 20200409
  Serious: No
  Sender: FDA-Public Use
  Company Number: US-TOPROL ACQUISITION LLC-2020-TOP-000032

PATIENT
  Sex: Male
  Weight: 101.2 kg

DRUGS (5)
  1. METOPROLOL SUCCINATE. [Suspect]
     Active Substance: METOPROLOL SUCCINATE
     Indication: PALPITATIONS
  2. PANTOPRAZOLE [Suspect]
     Active Substance: PANTOPRAZOLE
     Indication: REFLUX GASTRITIS
  3. VALIUM [Concomitant]
     Active Substance: DIAZEPAM
     Indication: ARRHYTHMIA
  4. VALIUM [Concomitant]
     Active Substance: DIAZEPAM
     Indication: ANXIETY
  5. PANTOPRAZOLE [Suspect]
     Active Substance: PANTOPRAZOLE
     Indication: GASTRITIS
     Dosage: UNK
     Dates: end: 20191211

REACTIONS (8)
  - Anxiety [Unknown]
  - Palpitations [Recovered/Resolved]
  - Hot flush [Unknown]
  - Blood pressure abnormal [Unknown]
  - Disease recurrence [Unknown]
  - Asthenia [Unknown]
  - Arrhythmia [Unknown]
  - Off label use [Unknown]
